FAERS Safety Report 4526390-7 (Version None)
Quarter: 2004Q4

REPORT INFORMATION
  Report Type: 
  Country: None (occurrence: None)
  Receive Date: 20041214
  Receipt Date: 20041207
  Transmission Date: 20050328
  Serious: Yes (Hospitalization)
  Sender: FDA-Public Use
  Company Number: NL-BRISTOL-MYERS SQUIBB COMPANY-12789269

PATIENT
  Age: 27 Year
  Sex: Female

DRUGS (8)
  1. BLEOMYCIN SULFATE [Suspect]
     Indication: HODGKIN'S DISEASE
  2. VINCRISTINE [Suspect]
     Indication: HODGKIN'S DISEASE
  3. MECHLORETHAMINE HCL [Suspect]
     Indication: HODGKIN'S DISEASE
  4. PROCARBAZINE [Suspect]
     Indication: HODGKIN'S DISEASE
  5. ADRIAMYCIN PFS [Suspect]
     Indication: HODGKIN'S DISEASE
  6. PREDNISONE TAB [Suspect]
     Indication: HODGKIN'S DISEASE
  7. VINBLASTINE SULFATE [Suspect]
     Indication: HODGKIN'S DISEASE
  8. RADIOTHERAPY [Suspect]
     Indication: HODGKIN'S DISEASE
     Dosage: -4000 CGY IN 20  FRACTIONS

REACTIONS (5)
  - CARDIAC FAILURE [None]
  - CARDIOTOXICITY [None]
  - HEART VALVE INSUFFICIENCY [None]
  - PERICARDITIS [None]
  - PLEURAL EFFUSION [None]
